FAERS Safety Report 8486269-5 (Version None)
Quarter: 2012Q3

REPORT INFORMATION
  Report Type: 
  Country: None (occurrence: None)
  Receive Date: 20120703
  Receipt Date: 20120628
  Transmission Date: 20120928
  Serious: Yes (Other)
  Sender: FDA-Public Use
  Company Number: CA-PFIZER INC-2012114424

PATIENT
  Age: 40 Year
  Sex: Female

DRUGS (2)
  1. CRESTOR [Concomitant]
     Indication: HYPERTENSION
     Dosage: UNK
     Dates: start: 20050101
  2. SOMAVERT [Suspect]
     Indication: ACROMEGALY
     Dosage: UNK, ONCE DAILY
     Dates: start: 20120308

REACTIONS (2)
  - LIPODYSTROPHY ACQUIRED [None]
  - WEIGHT INCREASED [None]
